FAERS Safety Report 17305467 (Version 1)
Quarter: 2020Q1

REPORT INFORMATION
  Report Type: Spontaneous
  Country: US (occurrence: US)
  Receive Date: 20200123
  Receipt Date: 20200123
  Transmission Date: 20200409
  Serious: Yes (Death, Hospitalization)
  Sender: FDA-Public Use
  Company Number: US-PFIZER INC-2020027929

PATIENT
  Age: 83 Year
  Sex: Female

DRUGS (4)
  1. DROPERIDOL. [Concomitant]
     Active Substance: DROPERIDOL
     Indication: URINARY TRACT INFECTION STAPHYLOCOCCAL
     Dosage: 2.5 MG, EVERY 4 HRS (AS NEEDED)
     Route: 030
  2. ANTACID [ALUMINIUM HYDROXIDE;MAGNESIUM HYDROXIDE] [Concomitant]
     Indication: URINARY TRACT INFECTION STAPHYLOCOCCAL
     Dosage: UNK
  3. VANCOMYCIN HCL [Suspect]
     Active Substance: VANCOMYCIN HYDROCHLORIDE
     Indication: URINARY TRACT INFECTION STAPHYLOCOCCAL
     Dosage: 1 G, 1X/DAY
     Route: 042
  4. GENTAMICIN. [Concomitant]
     Active Substance: GENTAMICIN
     Indication: URINARY TRACT INFECTION STAPHYLOCOCCAL
     Dosage: 80 MG, UNK  (TWO 1-TIME DOSES, 4 DAYS APART)
     Route: 042

REACTIONS (1)
  - Stevens-Johnson syndrome [Fatal]
